FAERS Safety Report 16113659 (Version 2)
Quarter: 2021Q2

REPORT INFORMATION
  Report Type: Spontaneous
  Country: US (occurrence: US)
  Receive Date: 20190325
  Receipt Date: 20210413
  Transmission Date: 20210716
  Serious: No
  Sender: FDA-Public Use
  Company Number: US-ALLERGAN-1850258US

PATIENT
  Age: 63 Year
  Sex: Female

DRUGS (3)
  1. LATISSE [Suspect]
     Active Substance: BIMATOPROST
     Indication: GROWTH OF EYELASHES
     Dosage: 2 GTT, QPM
     Route: 061
     Dates: start: 201810, end: 201810
  2. PERMANENT MAKE?UP (EYELINER) [Concomitant]
  3. MASCARA [Concomitant]

REACTIONS (5)
  - Pruritus [Not Recovered/Not Resolved]
  - Dry skin [Recovering/Resolving]
  - Eyelid cyst [Recovering/Resolving]
  - Inappropriate schedule of product administration [Unknown]
  - Product administered at inappropriate site [Unknown]

NARRATIVE: CASE EVENT DATE: 201810
